FAERS Safety Report 7841430-5 (Version None)
Quarter: 2011Q4

REPORT INFORMATION
  Report Type: 
  Country: None (occurrence: None)
  Receive Date: 20111025
  Receipt Date: 20111018
  Transmission Date: 20120403
  Serious: Yes (Other)
  Sender: FDA-Public Use
  Company Number: US-JNJFOC-20110901963

PATIENT
  Sex: Male
  Weight: 108.86 kg

DRUGS (3)
  1. ACITRETIN [Suspect]
     Indication: ILL-DEFINED DISORDER
  2. STEROIDS NOS [Suspect]
     Indication: ILL-DEFINED DISORDER
     Route: 061
  3. USTEKINUMAB [Suspect]
     Indication: PSORIASIS
     Route: 058
     Dates: start: 20100623

REACTIONS (1)
  - MALIGNANT MELANOMA [None]
